FAERS Safety Report 6583567-7 (Version None)
Quarter: 2010Q1

REPORT INFORMATION
  Report Type: 
  Country: None (occurrence: None)
  Receive Date: 20100212
  Receipt Date: 20100212
  Transmission Date: 20100710
  Serious: Yes (Hospitalization)
  Sender: FDA-Public Use
  Company Number: None

PATIENT
  Age: 84 Year
  Sex: Male
  Weight: 64.8 kg

DRUGS (3)
  1. VANCOMYCIN [Suspect]
     Indication: OSTEOMYELITIS
     Dosage: 750 MG BID IV
     Route: 042
     Dates: start: 20091120, end: 20091201
  2. VANCOMYCIN [Suspect]
     Indication: UPPER RESPIRATORY TRACT INFECTION
     Dosage: 750 MG BID IV
     Route: 042
     Dates: start: 20091120, end: 20091201
  3. METFORMIN HYDROCHLORIDE [Suspect]
     Indication: DIABETES MELLITUS
     Dosage: 1000 MG BID PO
     Route: 048
     Dates: start: 20091127, end: 20091201

REACTIONS (6)
  - DRUG TOXICITY [None]
  - HAEMODIALYSIS [None]
  - HYPERKALAEMIA [None]
  - OSTEOMYELITIS [None]
  - RENAL FAILURE ACUTE [None]
  - TOE AMPUTATION [None]
